FAERS Safety Report 4993400-2 (Version None)
Quarter: 2006Q2

REPORT INFORMATION
  Report Type: 
  Country: None (occurrence: None)
  Receive Date: 20060505
  Receipt Date: 20060501
  Transmission Date: 20061013
  Serious: Yes (Other)
  Sender: FDA-Public Use
  Company Number: US-JNJFOC-20060500642

PATIENT
  Sex: Female

DRUGS (7)
  1. PEPCID COMPLETE MINT [Suspect]
     Route: 048
  2. PEPCID COMPLETE MINT [Suspect]
     Indication: GASTROINTESTINAL DISORDER
     Route: 048
  3. DILANTIN [Interacting]
     Dosage: 3 TABS
     Route: 048
  4. DILANTIN [Interacting]
     Indication: EPILEPSY
     Dosage: YEARS
     Route: 048
  5. PHENOBARBITAL TAB [Interacting]
     Dosage: 3 TABS
  6. PHENOBARBITAL TAB [Interacting]
     Indication: EPILEPSY
     Dosage: YEARS
  7. IBUPROFEN [Concomitant]
     Indication: HEADACHE

REACTIONS (2)
  - DRUG INTERACTION [None]
  - GRAND MAL CONVULSION [None]
